FAERS Safety Report 15842274 (Version 2)
Quarter: 2019Q1

REPORT INFORMATION
  Report Type: Report from Study
  Country: JP (occurrence: JP)
  Receive Date: 20190118
  Receipt Date: 20190318
  Transmission Date: 20190417
  Serious: Yes (Hospitalization, Other)
  Sender: FDA-Public Use
  Company Number: JP-ROCHE-2105562

PATIENT
  Age: 30 Year
  Sex: Female
  Weight: 63 kg

DRUGS (38)
  1. RITUXIMAB. [Suspect]
     Active Substance: RITUXIMAB
     Indication: PROPHYLAXIS AGAINST TRANSPLANT REJECTION
     Route: 041
     Dates: start: 20171011, end: 20171011
  2. GRACEPTOR [Suspect]
     Active Substance: TACROLIMUS
     Route: 048
     Dates: start: 20171028, end: 20171110
  3. SOLU-CORTEF [Concomitant]
     Active Substance: HYDROCORTISONE SODIUM SUCCINATE
     Route: 042
     Dates: start: 20171011, end: 20171011
  4. MEDROL [Concomitant]
     Active Substance: METHYLPREDNISOLONE
     Route: 048
     Dates: start: 20171130, end: 20171203
  5. MEDROL [Concomitant]
     Active Substance: METHYLPREDNISOLONE
     Route: 048
     Dates: start: 20180203
  6. METHYLPREDNISOLONE SUCCINATE (UNK INGREDIENTS) [Concomitant]
     Route: 042
     Dates: start: 20171119, end: 20171119
  7. ETIZOLAM [Concomitant]
     Active Substance: ETIZOLAM
     Indication: PROPHYLAXIS OF NAUSEA AND VOMITING
     Dosage: DOSE INTERVAL UNCERTAINTY
     Route: 048
     Dates: start: 20171026
  8. VALIXA [Concomitant]
     Active Substance: VALGANCICLOVIR
     Indication: INFECTION PROPHYLAXIS
     Dosage: DOSE INTERVAL UNCERTAINTY
     Route: 048
     Dates: start: 20171023, end: 20171215
  9. BASILIXIMAB [Concomitant]
     Active Substance: BASILIXIMAB
     Route: 042
     Dates: start: 20171025, end: 20171025
  10. RIONA [Concomitant]
     Active Substance: FERRIC CITRATE ANHYDROUS
     Indication: HYPERPHOSPHATAEMIA
     Dosage: DOSE INTERVAL UNCERTAINTY
     Route: 048
     Dates: start: 2017, end: 20171015
  11. DOMPERIDONE [Concomitant]
     Active Substance: DOMPERIDONE
     Route: 065
     Dates: start: 20170929, end: 20171005
  12. NEXIUM [Concomitant]
     Active Substance: ESOMEPRAZOLE MAGNESIUM
     Indication: PROPHYLAXIS AGAINST GASTROINTESTINAL ULCER
     Dosage: DOSE INTERVAL UNCERTAINTY
     Route: 048
     Dates: start: 20171111
  13. MEDROL [Concomitant]
     Active Substance: METHYLPREDNISOLONE
     Route: 048
     Dates: start: 20171126, end: 20171127
  14. MEDROL [Concomitant]
     Active Substance: METHYLPREDNISOLONE
     Route: 048
     Dates: start: 20171128, end: 20171129
  15. MEDROL [Concomitant]
     Active Substance: METHYLPREDNISOLONE
     Route: 048
     Dates: start: 20171204, end: 20180202
  16. PRIMPERAN [Concomitant]
     Active Substance: METOCLOPRAMIDE HYDROCHLORIDE
     Indication: PROPHYLAXIS OF NAUSEA AND VOMITING
     Dosage: DOSE INTERVAL UNCERTAINTY
     Route: 048
     Dates: start: 20171005, end: 20171116
  17. GRACEPTOR [Suspect]
     Active Substance: TACROLIMUS
     Route: 048
     Dates: start: 20171111
  18. DOMPERIDONE [Concomitant]
     Active Substance: DOMPERIDONE
     Indication: PROPHYLAXIS OF NAUSEA AND VOMITING
     Dosage: DOSE INTERVAL UNCERTAINTY
     Route: 048
     Dates: start: 20171013, end: 20171017
  19. TEPRENONE [Concomitant]
     Active Substance: TEPRENONE
     Indication: PROPHYLAXIS AGAINST GASTROINTESTINAL ULCER
     Dosage: DOSE INTERVAL UNCERTAINTY
     Route: 048
     Dates: start: 20171208
  20. MYCOPHENOLATE MOFETIL. [Suspect]
     Active Substance: MYCOPHENOLATE MOFETIL
     Indication: PROPHYLAXIS AGAINST TRANSPLANT REJECTION
     Route: 048
     Dates: start: 20171006, end: 20180202
  21. GRACEPTOR [Suspect]
     Active Substance: TACROLIMUS
     Route: 048
     Dates: start: 20171024, end: 20171027
  22. ACETAMINOPHEN. [Concomitant]
     Active Substance: ACETAMINOPHEN
     Route: 048
     Dates: start: 20171011, end: 20171011
  23. MEDROL [Concomitant]
     Active Substance: METHYLPREDNISOLONE
     Route: 048
     Dates: start: 20171114, end: 20171118
  24. BASILIXIMAB [Concomitant]
     Active Substance: BASILIXIMAB
     Route: 042
     Dates: start: 20171018, end: 20171018
  25. LANSOPRAZOLE. [Concomitant]
     Active Substance: LANSOPRAZOLE
     Indication: PROPHYLAXIS AGAINST GASTROINTESTINAL ULCER
     Dosage: DOSE INTERVAL UNCERTAINTY
     Route: 048
     Dates: start: 20171006
  26. DAIPHEN [Concomitant]
     Active Substance: SULFAMETHOXAZOLE\TRIMETHOPRIM
     Indication: INFECTION PROPHYLAXIS
     Route: 048
     Dates: start: 20171104
  27. EPINASTINE HYDROCHLORIDE. [Concomitant]
     Active Substance: EPINASTINE HYDROCHLORIDE
     Indication: PRURITUS
     Dosage: DOSE INTERVAL UNCERTAINTY
     Route: 048
     Dates: start: 20171005, end: 20171116
  28. VALIXA [Concomitant]
     Active Substance: VALGANCICLOVIR
     Dosage: DOSE INTERVAL UNCERTAINTY
     Route: 048
     Dates: start: 20180303
  29. MYCOPHENOLATE MOFETIL. [Suspect]
     Active Substance: MYCOPHENOLATE MOFETIL
     Route: 048
     Dates: start: 20180203
  30. METHYLPREDNISOLONE SUCCINATE (UNK INGREDIENTS) [Concomitant]
     Route: 042
     Dates: start: 20171121, end: 20171121
  31. ETIZOLAM [Concomitant]
     Active Substance: ETIZOLAM
     Indication: PROPHYLAXIS
  32. VALIXA [Concomitant]
     Active Substance: VALGANCICLOVIR
     Dosage: DOSE INTERVAL UNCERTAINTY
     Route: 048
     Dates: start: 20180202, end: 20180302
  33. GRACEPTOR [Suspect]
     Active Substance: TACROLIMUS
     Indication: PROPHYLAXIS AGAINST TRANSPLANT REJECTION
     Route: 048
     Dates: start: 20171011, end: 20171019
  34. GRACEPTOR [Suspect]
     Active Substance: TACROLIMUS
     Route: 048
     Dates: start: 20171020, end: 20171023
  35. METHYLPREDNISOLONE SUCCINATE (UNK INGREDIENTS) [Concomitant]
     Route: 042
     Dates: start: 20171118, end: 20171118
  36. METHYLPREDNISOLONE SUCCINATE (UNK INGREDIENTS) [Concomitant]
     Route: 042
     Dates: start: 20171122, end: 20171123
  37. MEDROL [Concomitant]
     Active Substance: METHYLPREDNISOLONE
     Route: 048
     Dates: start: 20171124, end: 20171125
  38. METHYLPREDNISOLONE SUCCINATE (UNK INGREDIENTS) [Concomitant]
     Route: 042
     Dates: start: 20171120, end: 20171120

REACTIONS (9)
  - Neutropenia [Recovered/Resolved]
  - Leukopenia [Recovered/Resolved]
  - Hypertension [Not Recovered/Not Resolved]
  - Back pain [Recovered/Resolved]
  - Pain [Recovered/Resolved]
  - Chest pain [Recovered/Resolved]
  - Cytomegalovirus infection [Recovered/Resolved]
  - Anaemia [Recovered/Resolved]
  - Musculoskeletal pain [Recovered/Resolved]

NARRATIVE: CASE EVENT DATE: 20171124
